FAERS Safety Report 6482565-1 (Version None)
Quarter: 2009Q4

REPORT INFORMATION
  Report Type: 
  Country: None (occurrence: None)
  Receive Date: 20091208
  Receipt Date: 20091021
  Transmission Date: 20100525
  Serious: No
  Sender: FDA-Public Use
  Company Number: US-AMGEN-KDL370461

PATIENT
  Sex: Female
  Weight: 82 kg

DRUGS (8)
  1. ENBREL [Suspect]
     Indication: RHEUMATOID ARTHRITIS
     Route: 058
     Dates: start: 20090424
  2. METHOTREXATE [Concomitant]
     Route: 048
  3. CELEBREX [Concomitant]
  4. FOLIC ACID [Concomitant]
  5. L-THYROXIN [Concomitant]
  6. PREDNISONE [Concomitant]
  7. PROMETRIUM [Concomitant]
  8. RESTASIS [Concomitant]

REACTIONS (6)
  - INJECTION SITE ERYTHEMA [None]
  - INJECTION SITE PRURITUS [None]
  - INJECTION SITE REACTION [None]
  - INJECTION SITE SWELLING [None]
  - INJECTION SITE WARMTH [None]
  - NASOPHARYNGITIS [None]
